FAERS Safety Report 6710000-4 (Version None)
Quarter: 2010Q2

REPORT INFORMATION
  Report Type: 
  Country: None (occurrence: None)
  Receive Date: 20100503
  Receipt Date: 20100503
  Transmission Date: 20101027
  Serious: Yes (Other)
  Sender: FDA-Public Use
  Company Number: None

PATIENT
  Age: 18 Month
  Sex: Male
  Weight: 11.7935 kg

DRUGS (6)
  1. CHILDREN'S TYLENOL SUSPENSION [Suspect]
     Indication: DISCOMFORT
     Dosage: 1 TSP 4 HOURS PO
     Route: 048
     Dates: start: 20100101, end: 20100430
  2. CHILDREN'S TYLENOL SUSPENSION [Suspect]
     Indication: NASAL CONGESTION
     Dosage: 1 TSP 4 HOURS PO
     Route: 048
     Dates: start: 20100101, end: 20100430
  3. CHILDREN'S TYLENOL SUSPENSION [Suspect]
     Indication: PYREXIA
     Dosage: 1 TSP 4 HOURS PO
     Route: 048
     Dates: start: 20100101, end: 20100430
  4. CHILDREN'S MOTRIN [Suspect]
     Indication: DISCOMFORT
     Dosage: 1 TSP 6-8 HOURS PO
     Route: 048
     Dates: start: 20100101, end: 20100430
  5. CHILDREN'S MOTRIN [Suspect]
     Indication: NASAL CONGESTION
     Dosage: 1 TSP 6-8 HOURS PO
     Route: 048
     Dates: start: 20100101, end: 20100430
  6. CHILDREN'S MOTRIN [Suspect]
     Indication: PYREXIA
     Dosage: 1 TSP 6-8 HOURS PO
     Route: 048
     Dates: start: 20100101, end: 20100430

REACTIONS (3)
  - MALAISE [None]
  - PRODUCT QUALITY ISSUE [None]
  - VOMITING [None]
